FAERS Safety Report 5400709-7 (Version None)
Quarter: 2007Q3

REPORT INFORMATION
  Report Type: 
  Country: None (occurrence: None)
  Receive Date: 20070730
  Receipt Date: 20070719
  Transmission Date: 20080115
  Serious: Yes (Death, Other)
  Sender: FDA-Public Use
  Company Number: CN-PFIZER INC-2007049724

PATIENT
  Age: 50 Year
  Sex: Female

DRUGS (7)
  1. VFEND [Suspect]
     Indication: LUNG INFECTION
     Route: 042
     Dates: start: 20070526, end: 20070615
  2. VFEND [Suspect]
     Indication: FUNGAL INFECTION
  3. AMPHOTERICIN B [Suspect]
     Indication: LUNG INFECTION
     Dates: start: 20070101, end: 20070101
  4. AMPHOTERICIN B [Suspect]
     Indication: FUNGAL INFECTION
  5. MEROPENEM [Concomitant]
  6. MOXIFLOXACIN HYDROCHLORIDE [Concomitant]
  7. MEDROL [Concomitant]

REACTIONS (3)
  - DEAFNESS [None]
  - HYPOKALAEMIA [None]
  - IMMUNODEFICIENCY [None]
